FAERS Safety Report 5982079-9 (Version None)
Quarter: 2008Q4

REPORT INFORMATION
  Report Type: 
  Country: None (occurrence: None)
  Receive Date: 20081202
  Receipt Date: 20081118
  Transmission Date: 20090506
  Serious: Yes (Hospitalization)
  Sender: FDA-Public Use
  Company Number: 232029K08USA

PATIENT
  Age: 56 Year
  Sex: Female

DRUGS (2)
  1. REBIF [Suspect]
     Indication: MULTIPLE SCLEROSIS
     Dosage: 44 MCG, 3 IN 1 WEEKS, SUBCUTANEOUS
     Route: 058
     Dates: start: 20070914
  2. UNSPECIFIED MEDICATIONS (ALL OTHER THERAPEUTIC PRODUCTS) [Concomitant]

REACTIONS (7)
  - ANOREXIA [None]
  - CONDITION AGGRAVATED [None]
  - DEHYDRATION [None]
  - DYSPHAGIA [None]
  - MULTIPLE SCLEROSIS [None]
  - URINARY TRACT INFECTION [None]
  - WEIGHT DECREASED [None]
